FAERS Safety Report 5839539-0 (Version None)
Quarter: 2008Q3

REPORT INFORMATION
  Report Type: 
  Country: None (occurrence: None)
  Receive Date: 20080811
  Receipt Date: 20080801
  Transmission Date: 20090109
  Serious: Yes (Hospitalization, Other)
  Sender: FDA-Public Use
  Company Number: US-SP-2008-02089

PATIENT
  Sex: Female

DRUGS (3)
  1. IMOVAX RABIES I.D. [Suspect]
     Indication: IMMUNISATION
     Route: 065
     Dates: start: 20080623
  2. IMOVAX RABIES I.D. [Suspect]
     Route: 065
     Dates: start: 20080623
  3. TOPAMAX [Concomitant]

REACTIONS (10)
  - ANGIOEDEMA [None]
  - DYSPNOEA [None]
  - DYSURIA [None]
  - EYELID OEDEMA [None]
  - GENITAL SWELLING [None]
  - LOCAL SWELLING [None]
  - PHARYNGEAL OEDEMA [None]
  - RASH [None]
  - SWELLING FACE [None]
  - SWOLLEN TONGUE [None]
